FAERS Safety Report 9735500 (Version 1)
Quarter: 2013Q4

REPORT INFORMATION
  Report Type: Spontaneous
  Country: US (occurrence: US)
  Receive Date: 20131206
  Receipt Date: 20131206
  Transmission Date: 20140711
  Serious: No
  Sender: FDA-Public Use
  Company Number: US-GILEAD-2009-0023374

PATIENT
  Age: 62 Year
  Sex: Female
  Weight: 60.33 kg

DRUGS (14)
  1. LETAIRIS [Suspect]
     Indication: PULMONARY ARTERIAL HYPERTENSION
     Route: 048
     Dates: start: 20090610
  2. REVATIO [Concomitant]
  3. WARFARIN [Concomitant]
  4. METOLAZONE [Concomitant]
  5. SPIRONOLACTONE [Concomitant]
  6. K-DUR [Concomitant]
  7. TRAZODONE [Concomitant]
  8. MORPHINE [Concomitant]
  9. DIAZEPAM [Concomitant]
  10. LEVOTHYROXINE [Concomitant]
  11. CLONIDINE [Concomitant]
  12. VITAMIN C [Concomitant]
  13. VITAMIN B-12 [Concomitant]
  14. COLACE [Concomitant]

REACTIONS (4)
  - Oral pain [Recovered/Resolved]
  - Hyperaesthesia [Not Recovered/Not Resolved]
  - Myalgia [Recovered/Resolved]
  - Headache [Recovered/Resolved]
